FAERS Safety Report 20505590 (Version 2)
Quarter: 2022Q1

REPORT INFORMATION
  Report Type: Spontaneous
  Country: FR (occurrence: FR)
  Receive Date: 20220223
  Receipt Date: 20220307
  Transmission Date: 20220424
  Serious: No
  Sender: FDA-Public Use
  Company Number: FR-SA-SAC20220215001255

PATIENT
  Age: 14 Year
  Sex: Male
  Weight: 52.3 kg

DRUGS (5)
  1. MYOZYME [Suspect]
     Active Substance: ALGLUCOSIDASE ALFA
     Indication: Glycogen storage disease type II
     Dosage: 20 MG/KG, QW
     Dates: start: 200802
  2. AVALGLUCOSIDASE ALFA [Concomitant]
     Active Substance: AVALGLUCOSIDASE ALFA
     Indication: Glycogen storage disease type II
  3. AMOXICILLIN [Concomitant]
     Active Substance: AMOXICILLIN
     Dosage: 1 G, TID
     Dates: start: 2012
  4. CEFPODOXIME [Concomitant]
     Active Substance: CEFPODOXIME
     Dosage: 200 MG, QOD
     Dates: start: 2012
  5. RITUXIMAB [Concomitant]
     Active Substance: RITUXIMAB
     Dosage: UNK
     Dates: start: 200910, end: 201208

REACTIONS (3)
  - Cough [Unknown]
  - Therapeutic response decreased [Unknown]
  - Off label use [Unknown]

NARRATIVE: CASE EVENT DATE: 20080201
